FAERS Safety Report 21326354 (Version 1)
Quarter: 2022Q3

REPORT INFORMATION
  Report Type: Spontaneous
  Country: US (occurrence: US)
  Receive Date: 20220913
  Receipt Date: 20220913
  Transmission Date: 20221027
  Serious: No
  Sender: FDA-Public Use
  Company Number: US-BIOGEN-2022BI01154151

PATIENT
  Sex: Female
  Weight: 74.910 kg

DRUGS (3)
  1. VUMERITY [Suspect]
     Active Substance: DIROXIMEL FUMARATE
     Indication: Multiple sclerosis
     Route: 050
     Dates: start: 2021
  2. TOPIRAMATE [Concomitant]
     Active Substance: TOPIRAMATE
     Indication: Product used for unknown indication
     Route: 050
  3. CYANOCOBALAMIN [Concomitant]
     Active Substance: CYANOCOBALAMIN
     Indication: Product used for unknown indication
     Route: 050

REACTIONS (1)
  - Multiple sclerosis relapse [Unknown]

NARRATIVE: CASE EVENT DATE: 20210101
